FAERS Safety Report 9027944 (Version 1)
Quarter: 2013Q1

REPORT INFORMATION
  Report Type: Spontaneous
  Country: US (occurrence: None)
  Receive Date: 20130114
  Receipt Date: 20130114
  Transmission Date: 20140127
  Serious: Yes (Other)
  Sender: FDA-Public Use
  Company Number: None

PATIENT
  Sex: Female

DRUGS (1)
  1. ENBREL [Suspect]
     Indication: RHEUMATOID ARTHRITIS
     Dosage: 50MG QWEEK SQ
     Route: 058
     Dates: start: 20110730

REACTIONS (4)
  - Fungal infection [None]
  - Onychomycosis [None]
  - Vulvovaginal mycotic infection [None]
  - Upper-airway cough syndrome [None]
